FAERS Safety Report 5711844-8 (Version None)
Quarter: 2008Q2

REPORT INFORMATION
  Report Type: 
  Country: None (occurrence: None)
  Receive Date: 20080421
  Receipt Date: 20080325
  Transmission Date: 20081010
  Serious: No
  Sender: FDA-Public Use
  Company Number: US-BOEHRINGER INGELHEIM GMBH, GERMANY-2008-BP-04732BP

PATIENT
  Sex: Female

DRUGS (4)
  1. SPIRIVA [Suspect]
     Indication: PULMONARY FIBROSIS
     Route: 055
  2. SPIRIVA [Suspect]
     Indication: CHRONIC OBSTRUCTIVE PULMONARY DISEASE
  3. ALBUTEROL [Concomitant]
  4. OXYGEN [Concomitant]
     Dates: start: 20020101

REACTIONS (3)
  - COUGH [None]
  - DRUG INEFFECTIVE [None]
  - DRY MOUTH [None]
